FAERS Safety Report 19069053 (Version 1)
Quarter: 2021Q1

REPORT INFORMATION
  Report Type: Spontaneous
  Country: IT (occurrence: IT)
  Receive Date: 20210329
  Receipt Date: 20210329
  Transmission Date: 20210420
  Serious: Yes (Disabling)
  Sender: FDA-Public Use
  Company Number: IT-BAYER-2021-093421

PATIENT
  Age: 27 Year
  Sex: Female
  Weight: 45 kg

DRUGS (1)
  1. YAZ [Suspect]
     Active Substance: DROSPIRENONE\ETHINYL ESTRADIOL
     Indication: ACNE
     Dosage: 3 ?G, QD
     Route: 048
     Dates: start: 20140914, end: 20201014

REACTIONS (2)
  - Embolic stroke [Recovered/Resolved with Sequelae]
  - Psychological trauma [Recovering/Resolving]

NARRATIVE: CASE EVENT DATE: 20201014
